FAERS Safety Report 10498123 (Version 3)
Quarter: 2014Q4

REPORT INFORMATION
  Report Type: Spontaneous
  Country: US (occurrence: None)
  Receive Date: 20141002
  Receipt Date: 20141202
  Transmission Date: 20150528
  Serious: Yes (Death, Other)
  Sender: FDA-Public Use
  Company Number: KAD201409-001171

PATIENT
  Age: 54 Year
  Sex: Male

DRUGS (2)
  1. INTERFERON ALFACON-1 [Suspect]
     Active Substance: INTERFERON ALFACON-1
     Indication: HEPATITIS C
  2. RIBAVIRIN (RIBAVIRIN) [Suspect]
     Active Substance: RIBAVIRIN
     Indication: HEPATITIS C

REACTIONS (3)
  - Malaise [None]
  - Hepatitis C [None]
  - Organ failure [None]

NARRATIVE: CASE EVENT DATE: 20111102
